FAERS Safety Report 14901223 (Version 1)
Quarter: 2018Q2

REPORT INFORMATION
  Report Type: Spontaneous
  Country: ZA (occurrence: ZA)
  Receive Date: 20180516
  Receipt Date: 20180516
  Transmission Date: 20180711
  Serious: Yes (Other)
  Sender: FDA-Public Use
  Company Number: ZA-REGENERON PHARMACEUTICALS, INC.-2018-24032

PATIENT

DRUGS (1)
  1. EYLEA [Suspect]
     Active Substance: AFLIBERCEPT
     Indication: PRODUCT USED FOR UNKNOWN INDICATION
     Dosage: LAST DOSE OF EYLEA WAS RECEIVED ON 11-OCT-2017

REACTIONS (3)
  - Eye operation [Unknown]
  - Blindness transient [Recovering/Resolving]
  - Endophthalmitis [Unknown]
